FAERS Safety Report 5949968-2 (Version None)
Quarter: 2008Q4

REPORT INFORMATION
  Report Type: 
  Country: None (occurrence: None)
  Receive Date: 20081112
  Receipt Date: 20081031
  Transmission Date: 20090506
  Serious: No
  Sender: FDA-Public Use
  Company Number: US-BAYER-200830163NA

PATIENT
  Age: 29 Year
  Sex: Female
  Weight: 113 kg

DRUGS (1)
  1. MIRENA [Suspect]
     Indication: CONTRACEPTION
     Route: 015
     Dates: start: 20070130, end: 20080806

REACTIONS (1)
  - PREGNANCY WITH CONTRACEPTIVE DEVICE [None]
